FAERS Safety Report 11766446 (Version 3)
Quarter: 2015Q4

REPORT INFORMATION
  Report Type: Spontaneous
  Country: BR (occurrence: BR)
  Receive Date: 20151123
  Receipt Date: 20151125
  Transmission Date: 20160304
  Serious: Yes (Other)
  Sender: FDA-Public Use
  Company Number: BR-ABBVIE-15K-020-1503068-00

PATIENT
  Sex: Female

DRUGS (1)
  1. HUMIRA [Suspect]
     Active Substance: ADALIMUMAB
     Indication: PRODUCT USED FOR UNKNOWN INDICATION
     Route: 058

REACTIONS (9)
  - Gait disturbance [Not Recovered/Not Resolved]
  - Arthropathy [Not Recovered/Not Resolved]
  - Dyspnoea [Not Recovered/Not Resolved]
  - Rheumatoid arthritis [Not Recovered/Not Resolved]
  - Lung cyst [Unknown]
  - Anxiety [Not Recovered/Not Resolved]
  - Histoplasmosis [Unknown]
  - Hepatitis C [Unknown]
  - Chondropathy [Not Recovered/Not Resolved]
